FAERS Safety Report 4850634-5 (Version None)
Quarter: 2005Q4

REPORT INFORMATION
  Report Type: 
  Country: None (occurrence: None)
  Receive Date: 20051208
  Receipt Date: 20051128
  Transmission Date: 20060501
  Serious: Yes (Life-Threatening, Hospitalization, Disabling, Other)
  Sender: FDA-Public Use
  Company Number: GXKR2005GB02058

PATIENT
  Age: 47 Year
  Sex: Male
  Weight: 65 kg

DRUGS (8)
  1. ATENOLOL [Suspect]
     Dosage: 100 MG, ORAL
     Route: 048
     Dates: end: 20051110
  2. DILTIAZEM HYDROCHLORIDE [Suspect]
     Indication: BLOOD PRESSURE INCREASED
     Dosage: 200 MG, ORAL
     Route: 048
     Dates: start: 20051103, end: 20051110
  3. LISINOPRIL [Concomitant]
  4. BENDROFLUMETHIAZIDE (BENDROFLUMETHIAZIDE) [Concomitant]
  5. MOXONIDINE                  (MOXONIDINE) [Concomitant]
  6. GLICLAZIDE (GLICLAZIDE) [Concomitant]
  7. ATORVASTATIN CALCIUM [Concomitant]
  8. THIAMINE (THIAMINE) [Concomitant]

REACTIONS (5)
  - BRADYCARDIA [None]
  - DRUG INTERACTION [None]
  - HYPERKALAEMIA [None]
  - HYPOTENSION [None]
  - RENAL FAILURE [None]
